FAERS Safety Report 6912056-2 (Version None)
Quarter: 2010Q3

REPORT INFORMATION
  Report Type: 
  Country: None (occurrence: None)
  Receive Date: 20100806
  Receipt Date: 20071023
  Transmission Date: 20110219
  Serious: No
  Sender: FDA-Public Use
  Company Number: US-PFIZER INC-2007089376

PATIENT
  Sex: Male
  Weight: 50.8 kg

DRUGS (1)
  1. DETROL LA [Suspect]
     Indication: HYPERTONIC BLADDER
     Dates: start: 20070801

REACTIONS (3)
  - CONSTIPATION [None]
  - FATIGUE [None]
  - RASH [None]
